FAERS Safety Report 14383755 (Version 2)
Quarter: 2018Q1

REPORT INFORMATION
  Report Type: Spontaneous
  Country: US (occurrence: US)
  Receive Date: 20180115
  Receipt Date: 20180115
  Transmission Date: 20180509
  Serious: Yes (Hospitalization, Other)
  Sender: FDA-Public Use
  Company Number: US-TEVA-2018-US-845036

PATIENT
  Age: 63 Year
  Sex: Female
  Weight: 59 kg

DRUGS (4)
  1. PROVIGIL [Suspect]
     Active Substance: MODAFINIL
     Indication: SOMNOLENCE
     Dosage: 200 MILLIGRAM DAILY;
     Route: 065
     Dates: start: 2000
  2. XARELTO [Concomitant]
     Active Substance: RIVAROXABAN
     Route: 065
  3. PROVIGIL [Suspect]
     Active Substance: MODAFINIL
     Indication: FATIGUE
     Dosage: 200 MILLIGRAM DAILY;
     Route: 065
     Dates: start: 2000
  4. LAMITCAL [Concomitant]
     Indication: PRODUCT USED FOR UNKNOWN INDICATION
     Route: 065
     Dates: end: 2000

REACTIONS (7)
  - Hypervigilance [Unknown]
  - Inappropriate schedule of drug administration [Unknown]
  - Pneumonia aspiration [Unknown]
  - Incorrect dose administered [Unknown]
  - Oral surgery [Unknown]
  - Coma [Unknown]
  - Weight decreased [Unknown]

NARRATIVE: CASE EVENT DATE: 2017
